FAERS Safety Report 4396213-8 (Version None)
Quarter: 2004Q2

REPORT INFORMATION
  Report Type: 
  Country: None (occurrence: None)
  Receive Date: 20040621
  Receipt Date: 20031121
  Transmission Date: 20050107
  Serious: Yes (Death)
  Sender: FDA-Public Use
  Company Number: USA-2003-0010979

PATIENT
  Age: 60 Year
  Sex: Female

DRUGS (12)
  1. OXYCODONE HCL [Suspect]
  2. HYDROCODONE BITARTRATE [Suspect]
  3. CITALOPRAM [Suspect]
  4. DIPHENHYDRAMINE HCL [Suspect]
  5. PSEUDOEPHEDRINE HCL [Suspect]
  6. SERTRALINE (SERTRALINE) [Suspect]
  7. MEPROBAMATE [Suspect]
  8. CARISOPRODOL [Suspect]
  9. ALPRAZOLAM [Suspect]
  10. RANITIDINE [Suspect]
  11. NICOTINE [Suspect]
  12. EPHEDRINE SUL CAP [Suspect]

REACTIONS (2)
  - INTENTIONAL OVERDOSE [None]
  - MULTIPLE DRUG OVERDOSE [None]
